FAERS Safety Report 8054430 (Version 3)
Quarter: 2013Q1

REPORT INFORMATION
  Report Type: Spontaneous
  Country: US (occurrence: None)
  Receive Date: 20110713
  Receipt Date: 20121106
  Transmission Date: 20140127
  Serious: Yes (Life-Threatening, Other)
  Sender: FDA-Public Use
  Company Number: MC201100103

PATIENT
  Age: 61 Year
  Sex: Male
  Weight: 115 kg

DRUGS (18)
  1. ANGIOMAX [Suspect]
     Indication: ANTICOAGULANT THERAPY
     Dosage: 17 ML, BOLUS PRE/DURING PROCEDURE, FERN ACCESS PCI
     Dates: start: 20110309, end: 20110309
  2. UNSPECIFIED INGREDIENT [Suspect]
     Indication: ANTICOAGULANT THERAPY
     Dosage: 4 CAPSULES; LOADING DOSE, ORAL
     Dates: start: 20110309, end: 20110309
  3. ISOVUE 370 [Suspect]
     Indication: ANGIOGRAM
     Dosage: 386 ML, PRN, INTRACORONARY;
     Route: 022
     Dates: start: 20110309, end: 20110309
  4. ASPIRIN (ACETYLSALICYLIC ACID) [Concomitant]
  5. NEBIVOLOL HYDROCHLORIDE [Concomitant]
  6. FISH OIL (FISH OIL) [Concomitant]
  7. FLUOXETINE HCL [Concomitant]
  8. FOLIC ACID [Concomitant]
  9. NITROGLYCERIN [Concomitant]
  10. PRAVASTATIN [Concomitant]
  11. SAW PALMETTO (SERENOA REPENS) [Concomitant]
  12. VITAMIN E (TOCOPHERYL ACETATE) [Concomitant]
  13. RANITIDINE HYDROCHLORIDE [Concomitant]
  14. LISINOPRIL (LISINOPRIL DIHYDRATE) [Concomitant]
  15. HYDROCHLOROTHIAZIDE (HYDROCHLOROTHIAZIDE) [Concomitant]
  16. HEPARIN [Concomitant]
  17. CLOPIDOGREL (CLOPIDOGREL SULFATE) [Concomitant]
  18. VITAMINS [Concomitant]

REACTIONS (7)
  - Generalised erythema [None]
  - Hypotension [None]
  - Dyspnoea [None]
  - Pruritus [None]
  - Cardiac procedure complication [None]
  - Anaphylactic reaction [None]
  - Underdose [None]
